FAERS Safety Report 6634472-9 (Version None)
Quarter: 2010Q1

REPORT INFORMATION
  Report Type: 
  Country: None (occurrence: None)
  Receive Date: 20100315
  Receipt Date: 20100305
  Transmission Date: 20100710
  Serious: Yes (Other)
  Sender: FDA-Public Use
  Company Number: US-ASTRAZENECA-2010SE02934

PATIENT
  Sex: Female
  Weight: 68 kg

DRUGS (8)
  1. NEXIUM [Suspect]
     Route: 048
  2. FEMARA [Concomitant]
  3. ZOLOFT [Concomitant]
  4. METOPROLOL [Concomitant]
  5. LYRICA [Concomitant]
  6. GABAPENTIN [Concomitant]
  7. HYDROCODONE [Concomitant]
  8. XANAX [Concomitant]

REACTIONS (4)
  - BREAST CANCER [None]
  - DRUG DOSE OMISSION [None]
  - HIATUS HERNIA [None]
  - LUNG NEOPLASM MALIGNANT [None]
